FAERS Safety Report 21487215 (Version 1)
Quarter: 2022Q4

REPORT INFORMATION
  Report Type: Spontaneous
  Country: GB (occurrence: GB)
  Receive Date: 20221020
  Receipt Date: 20221020
  Transmission Date: 20230113
  Serious: Yes (Hospitalization)
  Sender: FDA-Public Use
  Company Number: GB-MYLANLABS-2022M1115172

PATIENT
  Age: 5 Decade
  Sex: Male

DRUGS (3)
  1. TEMOZOLOMIDE [Suspect]
     Active Substance: TEMOZOLOMIDE
     Indication: Palliative care
     Dosage: UNK
     Route: 065
  2. TEMOZOLOMIDE [Suspect]
     Active Substance: TEMOZOLOMIDE
     Indication: Metastases to meninges
     Dosage: UNK UNK, CYCLE; DOSE: REDUCED TO 85% IN CYCLE 2
     Route: 065
  3. DEXAMETHASONE [Concomitant]
     Active Substance: DEXAMETHASONE
     Indication: Meningitis
     Dosage: UNK; DOSE: HIGH-DOSE; INTRAVENOUS (NOT SPECIFIED)
     Route: 042

REACTIONS (1)
  - Drug ineffective [Unknown]
